FAERS Safety Report 14280568 (Version 3)
Quarter: 2018Q1

REPORT INFORMATION
  Report Type: Report from Study
  Country: BR (occurrence: BR)
  Receive Date: 20171213
  Receipt Date: 20180207
  Transmission Date: 20180508
  Serious: Yes (Other)
  Sender: FDA-Public Use
  Company Number: PHHY2017BR176879

PATIENT
  Sex: Male
  Weight: 69 kg

DRUGS (3)
  1. ZOMETA [Suspect]
     Active Substance: ZOLEDRONIC ACID
     Indication: OSTEOPOROSIS
     Dosage: UNK
     Route: 065
     Dates: start: 2000
  2. ACLASTA [Suspect]
     Active Substance: ZOLEDRONIC ACID
     Indication: OSTEOPOROSIS
     Dosage: 1 DF, Q12MO
     Route: 042
     Dates: start: 2000
  3. ACLASTA [Suspect]
     Active Substance: ZOLEDRONIC ACID
     Dosage: 1 DF, Q12MO
     Route: 042
     Dates: start: 201710

REACTIONS (12)
  - Joint lock [Recovering/Resolving]
  - Spinal pain [Recovering/Resolving]
  - Musculoskeletal stiffness [Not Recovered/Not Resolved]
  - Meniscus injury [Unknown]
  - Mobility decreased [Unknown]
  - Pain [Recovering/Resolving]
  - Neuralgia [Recovering/Resolving]
  - Gait inability [Unknown]
  - Spinal flattening [Unknown]
  - Back pain [Recovering/Resolving]
  - Drug ineffective [Unknown]
  - Bone pain [Unknown]
